FAERS Safety Report 24200160 (Version 1)
Quarter: 2024Q3

REPORT INFORMATION
  Report Type: Spontaneous
  Country: US (occurrence: US)
  Receive Date: 20240812
  Receipt Date: 20240812
  Transmission Date: 20241017
  Serious: Yes (Other)
  Sender: BRISTOL MYERS SQUIBB
  Company Number: US-BRISTOL-MYERS SQUIBB COMPANY-2024-122092

PATIENT
  Age: 64 Year
  Sex: Male

DRUGS (1)
  1. SPRYCEL [Suspect]
     Active Substance: DASATINIB
     Indication: Chronic myeloid leukaemia
     Route: 048
     Dates: start: 201702

REACTIONS (7)
  - Headache [Unknown]
  - Fatigue [Unknown]
  - Anxiety [Unknown]
  - Gastrointestinal disorder [Unknown]
  - Pain [Unknown]
  - Arthralgia [Unknown]
  - Drug ineffective [Unknown]
